FAERS Safety Report 12351842 (Version 5)
Quarter: 2017Q1

REPORT INFORMATION
  Report Type: Spontaneous
  Country: US (occurrence: TH)
  Receive Date: 20160510
  Receipt Date: 20170113
  Transmission Date: 20170428
  Serious: Yes (Other)
  Sender: FDA-Public Use
  Company Number: TH-JNJFOC-20150919765

PATIENT
  Sex: Male
  Weight: 86.18 kg

DRUGS (2)
  1. RISPERDAL [Suspect]
     Active Substance: RISPERIDONE
     Indication: PRODUCT USED FOR UNKNOWN INDICATION
     Route: 048
     Dates: start: 200502, end: 200509
  2. ZOLOFT [Suspect]
     Active Substance: SERTRALINE HYDROCHLORIDE
     Indication: PRODUCT USED FOR UNKNOWN INDICATION
     Route: 065

REACTIONS (14)
  - Victim of abuse [Unknown]
  - Wrong technique in product usage process [Unknown]
  - Adverse event [Unknown]
  - Withdrawal syndrome [Unknown]
  - Panic attack [Unknown]
  - Product shape issue [Unknown]
  - Injury [Recovered/Resolved]
  - Alcohol use [Unknown]
  - Affect lability [Unknown]
  - Underdose [Unknown]
  - Psychotic disorder [Unknown]
  - Personal relationship issue [Unknown]
  - Drug prescribing error [Unknown]
  - Off label use [Unknown]

NARRATIVE: CASE EVENT DATE: 2005
